FAERS Safety Report 5681464-2 (Version None)
Quarter: 2008Q1

REPORT INFORMATION
  Report Type: 
  Country: None (occurrence: None)
  Receive Date: 20080326
  Receipt Date: 20070313
  Transmission Date: 20080703
  Serious: No
  Sender: FDA-Public Use
  Company Number: US-BAYER-US-2007-003705

PATIENT
  Age: 32 Year
  Sex: Female
  Weight: 79 kg

DRUGS (2)
  1. MIRENA [Suspect]
     Indication: CONTRACEPTION
     Route: 015
     Dates: start: 20061101, end: 20070101
  2. VITAMIN TAB [Concomitant]
     Route: 048
     Dates: start: 20050801

REACTIONS (1)
  - URTICARIA [None]
